FAERS Safety Report 8380944-9 (Version None)
Quarter: 2012Q1

REPORT INFORMATION
  Report Type: 
  Country: None (occurrence: None)
  Receive Date: 20120323
  Receipt Date: 20110502
  Transmission Date: 20120608
  Serious: Yes (Other)
  Sender: FDA-Public Use
  Company Number: 163-21880-11023171

PATIENT
  Age: 52 Year
  Sex: Male

DRUGS (14)
  1. ALLOPURINOL [Concomitant]
  2. OXYCODONE HCL [Concomitant]
  3. COREG [Concomitant]
  4. CYMBALTA (FULOXETINE HYDROCHLORIDE) [Concomitant]
  5. LASIX [Concomitant]
  6. OXYCONTIN [Concomitant]
  7. RENA-VITE (NEPHROVITE) [Concomitant]
  8. FIORINOL (AXOTAL (OLD FORM) [Concomitant]
  9. VORINOSTAT [Concomitant]
  10. DEXAMETHASONE [Concomitant]
  11. TEMAZEPAM [Concomitant]
  12. REVLIMID [Suspect]
     Indication: MULTIPLE MYELOMA
     Dosage: 25 MG, DAILY X 21 DAYS, PO; 10 MG, DAILY X 21 DAYS, PO
     Route: 048
     Dates: start: 20110225
  13. REVLIMID [Suspect]
     Indication: MULTIPLE MYELOMA
     Dosage: 25 MG, DAILY X 21 DAYS, PO; 10 MG, DAILY X 21 DAYS, PO
     Route: 048
     Dates: start: 20101001
  14. LOMOTIL [Concomitant]

REACTIONS (2)
  - PLATELET COUNT DECREASED [None]
  - BONE MARROW FAILURE [None]
